FAERS Safety Report 9879642 (Version 1)
Quarter: 2014Q1

REPORT INFORMATION
  Report Type: Spontaneous
  Country: IN (occurrence: IN)
  Receive Date: 20140206
  Receipt Date: 20140206
  Transmission Date: 20141002
  Serious: Yes (Other)
  Sender: FDA-Public Use
  Company Number: IN-BAXTER-2014BAX005276

PATIENT
  Age: 3 Year
  Sex: Male

DRUGS (3)
  1. (IMMUNINE)-EP [Suspect]
     Indication: EPISTAXIS
     Route: 065
  2. (IMMUNINE)-EP [Suspect]
     Indication: MASS
  3. (IMMUNINE)-EP [Suspect]
     Indication: OFF LABEL USE

REACTIONS (1)
  - Treatment failure [Not Recovered/Not Resolved]
